FAERS Safety Report 5002819-5 (Version None)
Quarter: 2006Q2

REPORT INFORMATION
  Report Type: 
  Country: None (occurrence: None)
  Receive Date: 20060516
  Receipt Date: 20060509
  Transmission Date: 20061013
  Serious: Yes (Other)
  Sender: FDA-Public Use
  Company Number: US-AVENTIS-200615040GDDC

PATIENT
  Age: 58 Year
  Sex: Male

DRUGS (3)
  1. TAXOTERE [Suspect]
     Indication: NON-SMALL CELL LUNG CANCER
     Route: 042
     Dates: start: 20060326, end: 20060326
  2. CARBOPLATIN [Suspect]
     Indication: NON-SMALL CELL LUNG CANCER
     Dosage: DOSE: AUC 6
     Route: 042
     Dates: start: 20060326, end: 20060326
  3. DEXAMETHASONE [Suspect]
     Route: 048
     Dates: start: 20060417, end: 20060419

REACTIONS (1)
  - HYPERGLYCAEMIA [None]
